FAERS Safety Report 6506042-4 (Version None)
Quarter: 2009Q4

REPORT INFORMATION
  Report Type: 
  Country: None (occurrence: None)
  Receive Date: 20091217
  Receipt Date: 20091217
  Transmission Date: 20100525
  Serious: Yes (Life-Threatening, Other)
  Sender: FDA-Public Use
  Company Number: None

PATIENT
  Age: 51 Year
  Sex: Female
  Weight: 72.5755 kg

DRUGS (3)
  1. SYNTHROID [Suspect]
     Indication: NEOPLASM MALIGNANT
     Dosage: 125MCG  1X@DAY PO
     Route: 048
     Dates: start: 19780101, end: 19990101
  2. SYNTHROID [Suspect]
     Indication: THYROIDECTOMY
     Dosage: 125MCG  1X@DAY PO
     Route: 048
     Dates: start: 19780101, end: 19990101
  3. LEVOTHYROIXINE 100MCG MYLAN [Suspect]
     Dosage: 100MCG 1X@DAY PO
     Route: 048
     Dates: start: 19990101, end: 20090101

REACTIONS (11)
  - ARTHRALGIA [None]
  - CARPAL TUNNEL SYNDROME [None]
  - DEPRESSION [None]
  - DIZZINESS [None]
  - FATIGUE [None]
  - FEELING ABNORMAL [None]
  - HEADACHE [None]
  - HYPERSENSITIVITY [None]
  - PAIN [None]
  - TEMPERATURE INTOLERANCE [None]
  - WEIGHT INCREASED [None]
